FAERS Safety Report 13278100 (Version 4)
Quarter: 2017Q2

REPORT INFORMATION
  Report Type: Spontaneous
  Country: US (occurrence: US)
  Receive Date: 20170228
  Receipt Date: 20170522
  Transmission Date: 20170830
  Serious: No
  Sender: FDA-Public Use
  Company Number: US-PFIZER INC-2017081393

PATIENT
  Age: 72 Year
  Sex: Male
  Weight: 67.59 kg

DRUGS (2)
  1. PREVACID [Concomitant]
     Active Substance: LANSOPRAZOLE
     Dosage: UNK
  2. VFEND [Suspect]
     Active Substance: VORICONAZOLE
     Indication: ASPERGILLUS INFECTION
     Dosage: 200 MG, 2X/DAY (200MG ONE PILL EVERY 12 HOURS)
     Dates: start: 2017, end: 20170310

REACTIONS (5)
  - Malaise [Unknown]
  - Pyrexia [Recovering/Resolving]
  - Pallor [Unknown]
  - Irritability [Unknown]
  - Weight decreased [Unknown]

NARRATIVE: CASE EVENT DATE: 20170312
